FAERS Safety Report 5024133-4 (Version None)
Quarter: 2006Q2

REPORT INFORMATION
  Report Type: 
  Country: None (occurrence: None)
  Receive Date: 20060607
  Receipt Date: 20060524
  Transmission Date: 20061013
  Serious: Yes (Hospitalization, Other)
  Sender: FDA-Public Use
  Company Number: 2006061731

PATIENT
  Age: 43 Year
  Sex: Female

DRUGS (4)
  1. NEURONTIN [Suspect]
     Indication: NEUROPATHY
     Dosage: 800 MG, 1 D, ORAL
     Route: 048
     Dates: start: 19990101
  2. LYRICA [Suspect]
     Indication: NEUROPATHY
     Dosage: 150 MG (75 MG, 2 IN 1 D), ORAL
     Route: 048
  3. PREDNISONE TAB [Suspect]
     Indication: ILL-DEFINED DISORDER
     Dosage: 2 G
  4. PLAVIX [Concomitant]

REACTIONS (7)
  - ALOPECIA [None]
  - FATIGUE [None]
  - HAEMORRHAGIC STROKE [None]
  - HYPERSOMNIA [None]
  - INFECTION [None]
  - LETHARGY [None]
  - SYSTEMIC LUPUS ERYTHEMATOSUS [None]
